FAERS Safety Report 7152494-9 (Version None)
Quarter: 2010Q4

REPORT INFORMATION
  Report Type: 
  Country: None (occurrence: None)
  Receive Date: 20101213
  Receipt Date: 20101208
  Transmission Date: 20110411
  Serious: Yes (Hospitalization, Other)
  Sender: FDA-Public Use
  Company Number: US-PFIZER INC-2010014571

PATIENT
  Sex: Female
  Weight: 23 kg

DRUGS (7)
  1. DILANTIN [Suspect]
     Indication: CONVULSION
     Dosage: UNK
     Route: 048
     Dates: start: 19991222
  2. DILANTIN [Suspect]
     Dosage: 375 MG, 2X/DAY
     Route: 048
     Dates: start: 19991201
  3. DILANTIN [Suspect]
     Dosage: 50 MG, 2X/DAY
     Dates: end: 20000101
  4. DILANTIN [Suspect]
     Dosage: 50 MG ONE AND HALF IN THE MORNING, TWO AT NIGHT
  5. LAMICTAL [Concomitant]
     Dosage: 100 MG, 2X/DAY
  6. TEGRETOL [Concomitant]
     Dosage: 200 MG, 1X/DAY
  7. TEGRETOL [Concomitant]
     Dosage: 300 MG, UNK

REACTIONS (1)
  - STEVENS-JOHNSON SYNDROME [None]
